FAERS Safety Report 9694769 (Version 2)
Quarter: 2014Q1

REPORT INFORMATION
  Report Type: Spontaneous
  Country: US (occurrence: US)
  Receive Date: 20131119
  Receipt Date: 20140109
  Transmission Date: 20141002
  Serious: No
  Sender: FDA-Public Use
  Company Number: US-BIOGENIDEC-2013BI110215

PATIENT
  Age: 32 Year
  Sex: Female

DRUGS (6)
  1. TYSABRI [Suspect]
     Indication: MULTIPLE SCLEROSIS
     Route: 042
     Dates: start: 20080108, end: 20100313
  2. PROZAC [Concomitant]
  3. BUPROPION [Concomitant]
  4. AMANTADINE [Concomitant]
  5. TROSPIUM [Concomitant]
  6. ESTROGEN [Concomitant]

REACTIONS (4)
  - Hypersensitivity [Not Recovered/Not Resolved]
  - Dyspnoea [Unknown]
  - Chest discomfort [Unknown]
  - Drug specific antibody present [Not Recovered/Not Resolved]
